FAERS Safety Report 7607580-3 (Version None)
Quarter: 2011Q3

REPORT INFORMATION
  Report Type: 
  Country: None (occurrence: None)
  Receive Date: 20110713
  Receipt Date: 20110705
  Transmission Date: 20111222
  Serious: Yes (Hospitalization)
  Sender: FDA-Public Use
  Company Number: PHHO2007DE11479

PATIENT
  Sex: Male
  Weight: 54 kg

DRUGS (3)
  1. MYCOPHENOLATE MEFETIL [Suspect]
     Indication: HEART TRANSPLANT
     Dosage: 1 G, BID
     Route: 048
     Dates: start: 20070427
  2. NEORAL [Suspect]
     Indication: HEART TRANSPLANT
     Dosage: 300 MG, BID
     Route: 048
     Dates: start: 20070501
  3. FLUVASTATIN SODIUM [Suspect]
     Indication: HYPERLIPIDAEMIA
     Dosage: 20 MG, QD
     Route: 048
     Dates: start: 20070508, end: 20070705

REACTIONS (4)
  - ALANINE AMINOTRANSFERASE INCREASED [None]
  - ASPARTATE AMINOTRANSFERASE INCREASED [None]
  - GAMMA-GLUTAMYLTRANSFERASE INCREASED [None]
  - BLOOD ALKALINE PHOSPHATASE INCREASED [None]
